FAERS Safety Report 4292641-X (Version None)
Quarter: 2004Q1

REPORT INFORMATION
  Report Type: 
  Country: None (occurrence: None)
  Receive Date: 20040211
  Receipt Date: 20030731
  Transmission Date: 20041129
  Serious: Yes (Death, Hospitalization, Other)
  Sender: FDA-Public Use
  Company Number: PHNU2003DE02981

PATIENT
  Sex: Female
  Weight: 75 kg

DRUGS (1)
  1. AREDIA [Suspect]
     Indication: OSTEOPOROSIS
     Dosage: 30 MG, ONCE/SINGLE
     Dates: start: 20030403, end: 20030403

REACTIONS (7)
  - BLOOD ALKALINE PHOSPHATASE INCREASED [None]
  - BLOOD BILIRUBIN INCREASED [None]
  - CHOLESTASIS [None]
  - GAMMA-GLUTAMYLTRANSFERASE INCREASED [None]
  - HEPATIC ENZYME INCREASED [None]
  - JAUNDICE [None]
  - PANCREATIC NEOPLASM [None]
